FAERS Safety Report 11814242 (Version 2)
Quarter: 2016Q4

REPORT INFORMATION
  Report Type: Report from Study
  Country: UG (occurrence: UG)
  Receive Date: 20151209
  Receipt Date: 20161229
  Transmission Date: 20170206
  Serious: Yes (Life-Threatening, Hospitalization, Other)
  Sender: FDA-Public Use
  Company Number: UG-BRISTOL-MYERS SQUIBB COMPANY-21301353

PATIENT
  Age: 36 Year
  Sex: Male
  Weight: 60.5 kg

DRUGS (3)
  1. ETOPOSIDE PHOSPHATE [Suspect]
     Active Substance: ETOPOSIDE PHOSPHATE
     Indication: KAPOSI^S SARCOMA AIDS RELATED
     Dosage: LAST DOSE ADMINISTRED 18-JUL-2014, 25-SEP-2014.  DOSE: 150MG
     Route: 048
     Dates: start: 20140328, end: 20150919
  2. COTRIMOXAZOLE [Concomitant]
     Active Substance: SULFAMETHOXAZOLE\TRIMETHOPRIM
     Indication: PROPHYLAXIS
     Dosage: UNK
     Route: 048
     Dates: end: 20141118
  3. EFAVIRENZ, EMTRICITABINE, AND TENOFOVIR DISOPROXIL FUMARATE [Suspect]
     Active Substance: EFAVIRENZ\EMTRICITABINE\TENOFOVIR DISOPROXIL FUMARATE
     Indication: KAPOSI^S SARCOMA AIDS RELATED
     Dosage: 600 MG, QD
     Route: 048
     Dates: start: 20140328, end: 20141118

REACTIONS (5)
  - Abdominal pain upper [Unknown]
  - Aspartate aminotransferase increased [Not Recovered/Not Resolved]
  - Vomiting [Unknown]
  - Thrombocytopenia [Recovered/Resolved]
  - Pancreatitis [Recovered/Resolved]

NARRATIVE: CASE EVENT DATE: 20140806
